FAERS Safety Report 16527069 (Version 1)
Quarter: 2019Q3

REPORT INFORMATION
  Report Type: Spontaneous
  Country: US (occurrence: US)
  Receive Date: 20190703
  Receipt Date: 20190703
  Transmission Date: 20191004
  Serious: Yes (Other)
  Sender: FDA-Public Use
  Company Number: US-NALPROPION PHARMACEUTICALS INC.-2019-007716

PATIENT

DRUGS (9)
  1. ESTROGEN NOS W/PROGESTERONE [Concomitant]
     Indication: HOT FLUSH
     Dosage: UNK, QD (??-??-??? TO ??-FEB-2019)
     Route: 048
  2. CONTRAVE [Suspect]
     Active Substance: BUPROPION HYDROCHLORIDE\NALTREXONE HYDROCHLORIDE
     Indication: WEIGHT DECREASED
     Dosage: 2 TAB, BID, TWO TABLETS AM, TWO TABLETS PM
     Route: 048
     Dates: start: 201812, end: 20190620
  3. CONTRAVE [Suspect]
     Active Substance: BUPROPION HYDROCHLORIDE\NALTREXONE HYDROCHLORIDE
     Dosage: 1 TAB, QD
     Route: 048
     Dates: start: 201811
  4. PROGESTERONE. [Concomitant]
     Active Substance: PROGESTERONE
     Indication: MENOPAUSE
  5. ESTROGEN NOS W/PROGESTERONE [Concomitant]
     Indication: MENOPAUSE
  6. VITAMIN D                          /00107901/ [Concomitant]
     Active Substance: ERGOCALCIFEROL
     Indication: SUPPLEMENTATION THERAPY
     Dosage: 2000 MG, QD
     Route: 048
  7. ESTRADIOL. [Concomitant]
     Active Substance: ESTRADIOL
     Indication: HOT FLUSH
     Dosage: 1 MG, QD
     Route: 061
     Dates: start: 201905
  8. ESTRADIOL. [Concomitant]
     Active Substance: ESTRADIOL
     Indication: MENOPAUSE
  9. PROGESTERONE. [Concomitant]
     Active Substance: PROGESTERONE
     Indication: HOT FLUSH
     Dosage: 100 MG, QD
     Route: 048
     Dates: start: 201905

REACTIONS (9)
  - Biliary colic [Recovered/Resolved]
  - Procedural nausea [Recovered/Resolved]
  - Procedural pain [Recovered/Resolved]
  - Panic attack [Recovered/Resolved]
  - Hyperhidrosis [Recovered/Resolved]
  - Peripheral coldness [Recovered/Resolved]
  - Dehydration [Recovered/Resolved]
  - Vomiting [Recovered/Resolved]
  - Hypopnoea [Recovered/Resolved]

NARRATIVE: CASE EVENT DATE: 201903
